FAERS Safety Report 21640411 (Version 1)
Quarter: 2022Q4

REPORT INFORMATION
  Report Type: Spontaneous
  Country: FR (occurrence: FR)
  Receive Date: 20221124
  Receipt Date: 20221124
  Transmission Date: 20230112
  Serious: Yes (Other)
  Sender: FDA-Public Use
  Company Number: FR-VIIV HEALTHCARE LIMITED-FR2022EME170899

PATIENT
  Sex: Female

DRUGS (2)
  1. RILPIVIRINE [Suspect]
     Active Substance: RILPIVIRINE
     Indication: HIV infection
     Dosage: 900 MG, Z: EVERY 2 MONTHS
     Route: 030
     Dates: start: 20201214
  2. CABOTEGRAVIR [Suspect]
     Active Substance: CABOTEGRAVIR
     Indication: HIV infection
     Dosage: 600 MG, Z: EVERY 2 MONTHS
     Route: 030
     Dates: start: 20201214

REACTIONS (2)
  - Injection site atrophy [Not Recovered/Not Resolved]
  - Injection site granuloma [Not Recovered/Not Resolved]

NARRATIVE: CASE EVENT DATE: 20220801
